FAERS Safety Report 8905609 (Version 1)
Quarter: 2012Q4

REPORT INFORMATION
  Report Type: 
  Country: US (occurrence: US)
  Receive Date: 20121113
  Receipt Date: 20121113
  Transmission Date: 20130627
  Serious: Yes (Death, Hospitalization)
  Sender: FDA-Public Use
  Company Number: US-GLAXOSMITHKLINE-A0961218A

PATIENT
  Age: 57 Year
  Sex: Female
  Weight: 63.56 kg

DRUGS (28)
  1. BENLYSTA [Suspect]
     Indication: SYSTEMIC LUPUS ERYTHEMATOSUS
     Dosage: 720MG Cyclic
     Route: 042
     Dates: start: 20111206, end: 20111206
  2. METHOTREXATE [Concomitant]
     Route: 048
     Dates: start: 20111206
  3. PREDNISONE [Concomitant]
     Dosage: 5MG Per day
     Route: 048
     Dates: start: 20101201
  4. PLAQUENIL [Concomitant]
     Dosage: 200MG Per day
     Route: 048
     Dates: start: 20101201
  5. LISINOPRIL [Concomitant]
     Dosage: 20MG Per day
     Route: 048
     Dates: start: 20111115
  6. SYNTHROID [Concomitant]
     Dosage: 150MCG Per day
     Route: 048
     Dates: start: 20111115
  7. MULTI VITAMIN [Concomitant]
     Route: 048
  8. CALCIUM WITH VITAMIN D [Concomitant]
     Dosage: 600MG Per day
     Route: 048
  9. B COMPLEX [Concomitant]
     Dosage: 1MG Per day
     Route: 048
  10. LIDODERM PATCH [Concomitant]
     Route: 062
     Dates: start: 20100616
  11. HYDROCHLOROTHIAZIDE [Concomitant]
     Dosage: 12.5MG Per day
     Route: 048
     Dates: start: 20110429
  12. UNKNOWN [Concomitant]
     Dosage: .05PCT Per day
     Dates: start: 20110523
  13. UNKNOWN [Concomitant]
     Dates: start: 20110726
  14. CLONAZEPAM [Concomitant]
     Dosage: .5MG Per day
     Route: 048
     Dates: start: 20110726
  15. BONIVA [Concomitant]
     Dosage: 150MG In the morning
     Route: 048
     Dates: start: 20110726
  16. NEURONTIN [Concomitant]
     Dosage: 600MG Per day
     Route: 048
     Dates: start: 20110726
  17. EVOXAC [Concomitant]
     Dosage: 30MG Per day
     Route: 048
     Dates: start: 20110726
  18. RESTASIS [Concomitant]
     Dosage: .05PCT Per day
     Route: 047
     Dates: start: 20110726
  19. CARAFATE [Concomitant]
     Dosage: 1G Per day
     Route: 048
     Dates: start: 20110726
  20. IMURAN [Concomitant]
     Dosage: 50MG Per day
     Route: 048
     Dates: start: 20110726
  21. FOLIC ACID [Concomitant]
     Dosage: 1MG Per day
     Route: 048
     Dates: start: 20110902
  22. DIFLORASONE DIACETATE [Concomitant]
     Dosage: .05PCT Per day
     Dates: start: 20111025
  23. WELLBUTRIN SR [Concomitant]
     Dosage: 150MG Per day
     Route: 048
     Dates: start: 20111115
  24. VALTREX [Concomitant]
     Indication: SYSTEMIC LUPUS ERYTHEMATOSUS
     Dosage: 500MG Per day
     Route: 048
     Dates: start: 20111115
  25. TOPAMAX [Concomitant]
     Dosage: 100MG Per day
     Route: 048
     Dates: start: 20111122
  26. CLOBETASOL PROPIONATE [Concomitant]
     Dates: start: 20110314
  27. IBUPROFEN [Concomitant]
     Route: 048
     Dates: start: 20110429
  28. RELPAX [Concomitant]
     Indication: HEADACHE
     Route: 048
     Dates: start: 20110429

REACTIONS (6)
  - Septic shock [Fatal]
  - Renal failure [Fatal]
  - Sepsis [Fatal]
  - Blood glucose decreased [Unknown]
  - Dyspnoea [Unknown]
  - Pyrexia [Unknown]
